FAERS Safety Report 9962976 (Version 2)
Quarter: 2014Q2

REPORT INFORMATION
  Report Type: Spontaneous
  Country: US (occurrence: US)
  Receive Date: 20140305
  Receipt Date: 20140509
  Transmission Date: 20141212
  Serious: Yes (Other)
  Sender: FDA-Public Use
  Company Number: US-PFIZER INC-2014059364

PATIENT
  Sex: Female

DRUGS (1)
  1. SUTENT [Suspect]
     Indication: COLON CANCER STAGE IV
     Dosage: UNK
     Dates: start: 201402, end: 201402

REACTIONS (18)
  - Suicidal ideation [Recovered/Resolved]
  - Aphagia [Recovered/Resolved]
  - Speech disorder [Recovered/Resolved]
  - Dyspnoea [Recovered/Resolved]
  - Dysphagia [Recovered/Resolved]
  - Regurgitation [Recovered/Resolved]
  - Activities of daily living impaired [Recovered/Resolved]
  - Oral pain [Recovered/Resolved]
  - Mouth haemorrhage [Recovered/Resolved]
  - Mastication disorder [Recovered/Resolved]
  - Hypersensitivity [Recovered/Resolved]
  - Decreased appetite [Recovered/Resolved]
  - Swelling face [Recovered/Resolved]
  - Swollen tongue [Recovered/Resolved]
  - Tongue disorder [Recovered/Resolved]
  - Pharyngeal oedema [Unknown]
  - Dysphagia [Unknown]
  - Off label use [Unknown]
